FAERS Safety Report 12515741 (Version 6)
Quarter: 2016Q4

REPORT INFORMATION
  Report Type: Report from Study
  Country: US (occurrence: US)
  Receive Date: 20160630
  Receipt Date: 20161215
  Transmission Date: 20170207
  Serious: Yes (Hospitalization)
  Sender: FDA-Public Use
  Company Number: US-EISAI MEDICAL RESEARCH-EC-2016-018134

PATIENT
  Age: 51 Year
  Sex: Female
  Weight: 132.5 kg

DRUGS (29)
  1. ATORVASTATIN [Concomitant]
     Active Substance: ATORVASTATIN
  2. ZOFRAN ODT [Concomitant]
     Active Substance: ONDANSETRON HYDROCHLORIDE
  3. NEULASTA [Concomitant]
     Active Substance: PEGFILGRASTIM
  4. METOPROLOL. [Concomitant]
     Active Substance: METOPROLOL
  5. TRIAMTERENE - HCTZ [Concomitant]
  6. PERCOCET [Concomitant]
     Active Substance: ACETAMINOPHEN\OXYCODONE HYDROCHLORIDE
  7. KADIAN [Concomitant]
     Active Substance: MORPHINE SULFATE
  8. COLACE [Concomitant]
     Active Substance: DOCUSATE SODIUM
  9. TRAZODONE [Concomitant]
     Active Substance: TRAZODONE HYDROCHLORIDE
  10. CARAFATE [Concomitant]
     Active Substance: SUCRALFATE
  11. REGLAN [Concomitant]
     Active Substance: METOCLOPRAMIDE HYDROCHLORIDE
  12. ARANESP [Concomitant]
     Active Substance: DARBEPOETIN ALFA
  13. LACTULOSE. [Concomitant]
     Active Substance: LACTULOSE
  14. PIPERACILLIN [Concomitant]
     Active Substance: PIPERACILLIN
  15. DIFLUCAN [Concomitant]
     Active Substance: FLUCONAZOLE
  16. PEMBROLIZUMAB. [Suspect]
     Active Substance: PEMBROLIZUMAB
     Indication: BREAST CANCER
     Route: 041
     Dates: start: 20160602, end: 2016
  17. SENOKOT [Concomitant]
     Active Substance: SENNOSIDES
  18. DURAGESIC [Concomitant]
     Active Substance: FENTANYL
  19. ASA [Concomitant]
     Active Substance: ASPIRIN
  20. ACTIGALL [Concomitant]
     Active Substance: URSODIOL
  21. ENEMA (SODIUM PHOSPHATE, DIBASIC\SODIUM PHOSPHATE, MONOBASIC) [Concomitant]
     Active Substance: SODIUM PHOSPHATE, DIBASIC\SODIUM PHOSPHATE, MONOBASIC
  22. NORMAL SALINE [Concomitant]
     Active Substance: SODIUM CHLORIDE
  23. OXYCODONE [Concomitant]
     Active Substance: OXYCODONE
  24. MIRALAX [Concomitant]
     Active Substance: POLYETHYLENE GLYCOL 3350
  25. VANCOMYCIN [Concomitant]
     Active Substance: VANCOMYCIN
  26. ERIBULIN [Suspect]
     Active Substance: ERIBULIN
     Indication: BREAST CANCER
     Route: 041
     Dates: start: 20160602, end: 2016
  27. IBUPROFEN. [Concomitant]
     Active Substance: IBUPROFEN
  28. PHENERGAN [Concomitant]
     Active Substance: PROMETHAZINE HYDROCHLORIDE
  29. MILK OF MAGNESIA [Concomitant]
     Active Substance: MAGNESIUM HYDROXIDE

REACTIONS (2)
  - Pyrexia [Recovered/Resolved]
  - Abdominal pain upper [Recovered/Resolved]

NARRATIVE: CASE EVENT DATE: 20160625
